FAERS Safety Report 17743071 (Version 1)
Quarter: 2020Q2

REPORT INFORMATION
  Report Type: Spontaneous
  Country: US (occurrence: US)
  Receive Date: 20200505
  Receipt Date: 20200505
  Transmission Date: 20200714
  Serious: No
  Sender: FDA-Public Use
  Company Number: US-ROCHE-2389936

PATIENT
  Sex: Female

DRUGS (23)
  1. AMLODIPINE [Concomitant]
     Active Substance: AMLODIPINE BESYLATE
  2. AJOVY [Concomitant]
     Active Substance: FREMANEZUMAB-VFRM
  3. DULERA [Concomitant]
     Active Substance: FORMOTEROL FUMARATE DIHYDRATE\MOMETASONE FUROATE
  4. TEMAZEPAM. [Concomitant]
     Active Substance: TEMAZEPAM
  5. BISOPROLOL FUMARATE. [Concomitant]
     Active Substance: BISOPROLOL FUMARATE
  6. GLIPIZIDE. [Concomitant]
     Active Substance: GLIPIZIDE
  7. SYNTHROID [Concomitant]
     Active Substance: LEVOTHYROXINE SODIUM
  8. LUMIGAN [Concomitant]
     Active Substance: BIMATOPROST
  9. ESBRIET [Suspect]
     Active Substance: PIRFENIDONE
     Indication: IDIOPATHIC PULMONARY FIBROSIS
     Route: 048
     Dates: start: 20160420
  10. BUPROPION. [Concomitant]
     Active Substance: BUPROPION
  11. PRAVASTATIN SODIUM. [Concomitant]
     Active Substance: PRAVASTATIN SODIUM
  12. VITAMIN D3 [Concomitant]
     Active Substance: CHOLECALCIFEROL
  13. XALATAN [Concomitant]
     Active Substance: LATANOPROST
  14. PANTOPRAZOLE [Concomitant]
     Active Substance: PANTOPRAZOLE
  15. GABAPENTIN. [Concomitant]
     Active Substance: GABAPENTIN
  16. LOSARTAN POTASSIUM. [Concomitant]
     Active Substance: LOSARTAN POTASSIUM
  17. BUTALBITAL [Concomitant]
     Active Substance: BUTALBITAL
  18. FLONASE [Concomitant]
     Active Substance: FLUTICASONE PROPIONATE
  19. AZELASTINE. [Concomitant]
     Active Substance: AZELASTINE HYDROCHLORIDE
  20. CHLORTHALIDONE. [Concomitant]
     Active Substance: CHLORTHALIDONE
  21. MONTELUKAST SODIUM. [Concomitant]
     Active Substance: MONTELUKAST SODIUM
  22. TYLENOL [Concomitant]
     Active Substance: ACETAMINOPHEN
  23. SERTRALINE [Concomitant]
     Active Substance: SERTRALINE HYDROCHLORIDE

REACTIONS (1)
  - Migraine [Unknown]
